FAERS Safety Report 4422398-0 (Version None)
Quarter: 2004Q3

REPORT INFORMATION
  Report Type: 
  Country: None (occurrence: None)
  Receive Date: 20040804
  Receipt Date: 20040719
  Transmission Date: 20050211
  Serious: Yes (Other)
  Sender: FDA-Public Use
  Company Number: A0516681A

PATIENT
  Age: 64 Year
  Sex: Male
  Weight: 123.7413 kg

DRUGS (6)
  1. NICORETTE [Suspect]
     Indication: SMOKING CESSATION THERAPY
     Dosage: 4 MG/ TRANSBUCCAL
     Route: 002
     Dates: start: 20040605
  2. DILTIAZEM HYDROCHLORIDE [Concomitant]
  3. PIOGLITAZONE HCL [Concomitant]
  4. IBUPROFEN [Concomitant]
  5. ASPIRIN [Concomitant]
  6. THYROXINE SODIUM [Concomitant]

REACTIONS (5)
  - BLOOD GLUCOSE INCREASED [None]
  - CHEST WALL PAIN [None]
  - DIZZINESS [None]
  - FALL [None]
  - LOSS OF CONSCIOUSNESS [None]
